FAERS Safety Report 25245554 (Version 1)
Quarter: 2025Q2

REPORT INFORMATION
  Report Type: Spontaneous
  Country: CN (occurrence: CN)
  Receive Date: 20250428
  Receipt Date: 20250428
  Transmission Date: 20250716
  Serious: Yes (Other)
  Sender: BIO-THERA SOLUTIONS, LTD.
  Company Number: CN-Bio-Thera Solutions, Ltd.-2175731

PATIENT
  Age: 74 Year
  Sex: Male
  Weight: 70.0 kg

DRUGS (1)
  1. AVZIVI [Suspect]
     Active Substance: BEVACIZUMAB-TNJN
     Indication: Lung neoplasm malignant
     Dates: start: 20241205, end: 20241205

REACTIONS (1)
  - Interstitial lung disease [Recovering/Resolving]

NARRATIVE: CASE EVENT DATE: 20250116
